FAERS Safety Report 6440966-1 (Version None)
Quarter: 2009Q4

REPORT INFORMATION
  Report Type: 
  Country: None (occurrence: None)
  Receive Date: 20091116
  Receipt Date: 20091103
  Transmission Date: 20100525
  Serious: Yes (Hospitalization)
  Sender: FDA-Public Use
  Company Number: ES-ROCHE-666434

PATIENT
  Age: 37 Year
  Sex: Female

DRUGS (2)
  1. MYCOPHENOLATE MOFETIL [Suspect]
     Indication: NEPHROPATHY
     Route: 048
     Dates: start: 20081212, end: 20090108
  2. FERROGLYCINE SULPHATE [Suspect]
     Indication: NEPHROPATHY
     Dosage: DRUG: FERROSANOL
     Route: 048
     Dates: start: 20081212, end: 20090108

REACTIONS (2)
  - DECREASED APPETITE [None]
  - DIARRHOEA [None]
